FAERS Safety Report 4985104-7 (Version None)
Quarter: 2006Q2

REPORT INFORMATION
  Report Type: 
  Country: None (occurrence: None)
  Receive Date: 20060427
  Receipt Date: 20060308
  Transmission Date: 20061013
  Serious: Yes (Other)
  Sender: FDA-Public Use
  Company Number: AT-ABBOTT-06P-009-0327487-00

PATIENT
  Sex: Female

DRUGS (4)
  1. KALETRA [Suspect]
     Indication: HIV INFECTION
     Route: 048
     Dates: start: 20050829, end: 20051116
  2. EFAVIRENZ [Suspect]
     Indication: HIV INFECTION
     Dates: start: 20030423, end: 20050829
  3. VIREAD [Concomitant]
     Indication: HIV INFECTION
     Route: 048
     Dates: start: 20030114, end: 20051116
  4. LAMIVUDINE [Concomitant]
     Indication: HIV INFECTION
     Route: 048
     Dates: start: 20030114, end: 20051116

REACTIONS (2)
  - ABORTION INDUCED [None]
  - DRUG EXPOSURE DURING PREGNANCY [None]
